FAERS Safety Report 12424824 (Version 1)
Quarter: 2016Q2

REPORT INFORMATION
  Report Type: Spontaneous
  Country: US (occurrence: None)
  Receive Date: 20160531
  Receipt Date: 20160531
  Transmission Date: 20160815
  Serious: Yes (Hospitalization)
  Sender: FDA-Public Use
  Company Number: None

PATIENT
  Age: 68 Year
  Sex: Male
  Weight: 83.1 kg

DRUGS (1)
  1. ASPIRIN. [Suspect]
     Active Substance: ASPIRIN
     Indication: PROPHYLAXIS
     Route: 048
     Dates: start: 20070926, end: 20160418

REACTIONS (5)
  - Haemoglobin decreased [None]
  - Colitis [None]
  - Gastrointestinal haemorrhage [None]
  - Infectious colitis [None]
  - Haemorrhoids [None]

NARRATIVE: CASE EVENT DATE: 20160417
